FAERS Safety Report 15937983 (Version 1)
Quarter: 2019Q1

REPORT INFORMATION
  Report Type: Spontaneous
  Country: US (occurrence: US)
  Receive Date: 20190208
  Receipt Date: 20190208
  Transmission Date: 20190417
  Serious: No
  Sender: FDA-Public Use
  Company Number: US-ROCHE-2163077

PATIENT
  Age: 52 Year
  Sex: Female

DRUGS (11)
  1. TRAZODONE [Concomitant]
     Active Substance: TRAZODONE HYDROCHLORIDE
     Dosage: ONGOING: UNKNOWN
     Route: 065
     Dates: start: 20130618
  2. XOLAIR [Suspect]
     Active Substance: OMALIZUMAB
     Indication: ASTHMA
     Dosage: ONGOING: YES
     Route: 058
     Dates: start: 20150916
  3. ZOLOFT [Concomitant]
     Active Substance: SERTRALINE HYDROCHLORIDE
     Route: 065
     Dates: start: 20130619
  4. BREO ELLIPTA [Concomitant]
     Active Substance: FLUTICASONE FUROATE\VILANTEROL TRIFENATATE
     Dosage: ONGOING: UNKNOWN?INH 200-25
     Route: 065
     Dates: start: 20170315
  5. ATORVASTATIN [Concomitant]
     Active Substance: ATORVASTATIN
     Dosage: ONGOING: UNKNOWN
     Route: 065
     Dates: start: 20130618
  6. MUCINEX D [Concomitant]
     Active Substance: GUAIFENESIN\PSEUDOEPHEDRINE HYDROCHLORIDE
     Dosage: ONGOING: UNKNOWN?60-600 MG
     Route: 065
     Dates: start: 20170315
  7. CLARITIN [Concomitant]
     Active Substance: LORATADINE
     Dosage: ONGOING: UNKNOWN
     Route: 065
     Dates: start: 20170315
  8. SINGULAIR [Concomitant]
     Active Substance: MONTELUKAST SODIUM
     Dosage: ONGOING: UNKNOWN
     Route: 065
     Dates: start: 20130618
  9. VICTOZA [Concomitant]
     Active Substance: LIRAGLUTIDE
     Dosage: ONGOING: UNKNOWN?18MG/3ML
     Route: 065
     Dates: start: 20161031
  10. VITAMIN B12 [Concomitant]
     Active Substance: CYANOCOBALAMIN
     Dosage: ONGOING: UNKNOWN
     Route: 065
     Dates: start: 20170315
  11. FLONASE ALLERGY RELIEF [Concomitant]
     Active Substance: FLUTICASONE PROPIONATE
     Dosage: ONGOING: UNKNOWN
     Route: 065
     Dates: start: 20170315

REACTIONS (1)
  - Flushing [Unknown]

NARRATIVE: CASE EVENT DATE: 20180727
